FAERS Safety Report 10243771 (Version 2)
Quarter: 2014Q2

REPORT INFORMATION
  Report Type: Spontaneous
  Country: US (occurrence: US)
  Receive Date: 20140618
  Receipt Date: 20140618
  Transmission Date: 20141212
  Serious: Yes (Death)
  Sender: FDA-Public Use
  Company Number: US-CELGENEUS-163-21880-14033974

PATIENT
  Sex: Female

DRUGS (8)
  1. REVLIMID [Suspect]
     Indication: PLASMA CELL MYELOMA
     Dosage: 15 MILLIGRAM
     Route: 048
     Dates: start: 201207
  2. REVLIMID [Suspect]
     Dosage: 10 MILLIGRAM
     Route: 048
     Dates: start: 201209
  3. REVLIMID [Suspect]
     Dosage: 10 MILLIGRAM
     Route: 048
     Dates: start: 20140227, end: 20140516
  4. DILAUDID [Concomitant]
     Indication: PAIN
     Dosage: 2-4 MG
     Route: 065
     Dates: start: 201402, end: 201405
  5. RIVAROXABAN [Concomitant]
     Indication: DEEP VEIN THROMBOSIS
     Route: 065
     Dates: start: 201401, end: 201405
  6. RIVAROXABAN [Concomitant]
     Indication: PULMONARY EMBOLISM
  7. DUONEB [Concomitant]
     Indication: DYSPNOEA
     Dosage: 2.5 MG/3ML
     Route: 065
     Dates: start: 2010
  8. DEXAMETHASONE [Concomitant]
     Indication: PLASMA CELL MYELOMA
     Route: 048
     Dates: start: 201402

REACTIONS (2)
  - Death [Fatal]
  - Painful defaecation [Not Recovered/Not Resolved]
